FAERS Safety Report 8087107-5 (Version None)
Quarter: 2012Q1

REPORT INFORMATION
  Report Type: 
  Country: None (occurrence: None)
  Receive Date: 20120128
  Receipt Date: 20110523
  Transmission Date: 20120608
  Serious: No
  Sender: FDA-Public Use
  Company Number: US-ABBOTT-11P-163-0727970-00

PATIENT
  Age: 49 Year
  Sex: Male

DRUGS (3)
  1. HUMIRA [Suspect]
     Indication: CROHN'S DISEASE
     Dosage: LOADING DOSE OF 4 INJECTIONS
     Dates: start: 20091001, end: 20091001
  2. PRILOSEC [Concomitant]
     Indication: DYSPEPSIA
     Route: 048
  3. MEDICINAL MARIJUANA [Concomitant]
     Indication: PAIN
     Dosage: SMOKABLE FORM, PRN

REACTIONS (1)
  - DRUG INEFFECTIVE [None]
